FAERS Safety Report 9281833 (Version 1)
Quarter: 2013Q2

REPORT INFORMATION
  Report Type: Report from Study
  Country: US (occurrence: US)
  Receive Date: 20130510
  Receipt Date: 20130510
  Transmission Date: 20140414
  Serious: Yes (Hospitalization)
  Sender: FDA-Public Use
  Company Number: US-ROCHE-1222207

PATIENT
  Age: 84 Year
  Sex: Female
  Weight: 51.7 kg

DRUGS (16)
  1. CAPECITABINE [Suspect]
     Indication: PANCREATIC CARCINOMA METASTATIC
     Dosage: LAST DOSE OF XELODA  PRIOR TO THE EVENT: 06/FEB/2013
     Route: 048
     Dates: start: 20121205
  2. VANCOMYCIN [Concomitant]
     Route: 065
  3. DEXILANT [Concomitant]
     Route: 065
  4. DULERA [Concomitant]
     Route: 065
  5. LEVEMIR [Concomitant]
     Route: 065
  6. NOVOLOG [Concomitant]
     Route: 065
  7. PAXIL [Concomitant]
     Route: 065
  8. VASOTEC [Concomitant]
     Route: 065
  9. NORVASC [Concomitant]
     Route: 065
  10. FLORASTOR [Concomitant]
     Route: 065
  11. FUROSEMIDE [Concomitant]
     Route: 065
  12. SPIRONOLACTON [Concomitant]
     Route: 065
  13. POTASSIUM CHLORIDE [Concomitant]
     Route: 065
  14. CHOLESTYRAMINE [Concomitant]
     Route: 065
  15. PROTONIX [Concomitant]
     Route: 065
  16. TYLENOL [Concomitant]
     Route: 065

REACTIONS (5)
  - Necrotising colitis [Recovered/Resolved]
  - Diarrhoea [Recovered/Resolved]
  - Nausea [Recovered/Resolved]
  - Vomiting [Recovered/Resolved]
  - Atrial fibrillation [Not Recovered/Not Resolved]
